FAERS Safety Report 7738940-8 (Version None)
Quarter: 2011Q3

REPORT INFORMATION
  Report Type: 
  Country: None (occurrence: None)
  Receive Date: 20110909
  Receipt Date: 20110829
  Transmission Date: 20111222
  Serious: No
  Sender: FDA-Public Use
  Company Number: US-BIOGENIDEC-2011BI021125

PATIENT
  Sex: Female

DRUGS (3)
  1. TYSABRI [Suspect]
     Indication: MULTIPLE SCLEROSIS
     Route: 042
     Dates: start: 20110524
  2. AVONEX [Concomitant]
     Indication: MULTIPLE SCLEROSIS
     Route: 030
  3. TYSABRI [Suspect]
     Route: 042
     Dates: start: 20070124, end: 20070321

REACTIONS (7)
  - FATIGUE [None]
  - ABDOMINAL DISCOMFORT [None]
  - NAUSEA [None]
  - VISUAL IMPAIRMENT [None]
  - HEADACHE [None]
  - DIARRHOEA [None]
  - ASTHENIA [None]
